FAERS Safety Report 5737991-2 (Version None)
Quarter: 2008Q2

REPORT INFORMATION
  Report Type: 
  Country: None (occurrence: None)
  Receive Date: 20080514
  Receipt Date: 20080509
  Transmission Date: 20081010
  Serious: Yes (Other)
  Sender: FDA-Public Use
  Company Number: US-ASTRAZENECA-2008UW07710

PATIENT
  Age: 67 Year
  Sex: Male
  Weight: 92.5 kg

DRUGS (7)
  1. CRESTOR [Suspect]
     Indication: BLOOD CHOLESTEROL INCREASED
     Route: 048
     Dates: start: 20060101
  2. PLAVIX [Concomitant]
  3. METOPROLOL TARTRATE [Concomitant]
  4. TERAZOSIN HCL [Concomitant]
  5. FINASTERIDE [Concomitant]
  6. NITROGLYCERIN [Concomitant]
  7. ASPIRIN [Concomitant]

REACTIONS (4)
  - ARTHRALGIA [None]
  - ISCHAEMIA [None]
  - MYALGIA [None]
  - PAIN IN EXTREMITY [None]
